FAERS Safety Report 4443839-9 (Version None)
Quarter: 2004Q3

REPORT INFORMATION
  Report Type: 
  Country: None (occurrence: None)
  Receive Date: 20040830
  Receipt Date: 20040806
  Transmission Date: 20050211
  Serious: Yes (Other)
  Sender: FDA-Public Use
  Company Number: B0343361A

PATIENT
  Age: 29 Year
  Sex: Female

DRUGS (3)
  1. EPIVIR [Suspect]
  2. EFAVIRENZ (FORMULATION UNKNOWN) (EFAVIRENZ) [Suspect]
  3. STAVUDINE (FORMULATION UNKNOWN) (STAVUDINE) [Suspect]

REACTIONS (4)
  - CYTOLYTIC HEPATITIS [None]
  - HYPERLACTACIDAEMIA [None]
  - MYALGIA [None]
  - PERIPHERAL SENSORY NEUROPATHY [None]
